FAERS Safety Report 7774897-1 (Version None)
Quarter: 2011Q3

REPORT INFORMATION
  Report Type: 
  Country: None (occurrence: None)
  Receive Date: 20110921
  Receipt Date: 20110906
  Transmission Date: 20111222
  Serious: Yes (Life-Threatening, Hospitalization, Other)
  Sender: FDA-Public Use
  Company Number: 2011MA013064

PATIENT
  Age: 62 Year
  Sex: Male

DRUGS (1)
  1. METFORMIN HYDROCHLORIDE [Suspect]
     Dosage: 1000 MG;BID;UNK

REACTIONS (12)
  - BLOOD PRESSURE INCREASED [None]
  - NAUSEA [None]
  - HYPERTENSION [None]
  - HAEMODIALYSIS [None]
  - HYPOTHERMIA [None]
  - METABOLIC ACIDOSIS [None]
  - BLOOD GLUCOSE DECREASED [None]
  - ANION GAP INCREASED [None]
  - HYPOTENSION [None]
  - ABDOMINAL PAIN [None]
  - DIARRHOEA [None]
  - HYPOGLYCAEMIA [None]
